FAERS Safety Report 14199698 (Version 2)
Quarter: 2025Q1

REPORT INFORMATION
  Report Type: Spontaneous
  Country: US (occurrence: US)
  Receive Date: 20171117
  Receipt Date: 20250128
  Transmission Date: 20250409
  Serious: Yes (Hospitalization)
  Sender: PFIZER
  Company Number: US-PFIZER INC-2017490696

PATIENT

DRUGS (7)
  1. HYDROMORPHONE HYDROCHLORIDE [Suspect]
     Active Substance: HYDROMORPHONE HYDROCHLORIDE
     Indication: Back pain
     Route: 064
  2. HYDROMORPHONE HYDROCHLORIDE [Suspect]
     Active Substance: HYDROMORPHONE HYDROCHLORIDE
     Indication: Neck pain
  3. BUPIVACAINE HYDROCHLORIDE [Suspect]
     Active Substance: BUPIVACAINE HYDROCHLORIDE
     Indication: Back pain
     Route: 064
  4. BUPIVACAINE HYDROCHLORIDE [Suspect]
     Active Substance: BUPIVACAINE HYDROCHLORIDE
     Indication: Neck pain
  5. BACLOFEN [Suspect]
     Active Substance: BACLOFEN
     Route: 064
  6. AMITRIPTYLINE [Suspect]
     Active Substance: AMITRIPTYLINE
     Route: 064
  7. DRONABINOL [Suspect]
     Active Substance: DRONABINOL
     Route: 064

REACTIONS (4)
  - Maternal exposure during pregnancy [Recovered/Resolved]
  - Neonatal respiratory acidosis [Recovered/Resolved]
  - Stupor [Recovered/Resolved]
  - Drug screen positive [Recovered/Resolved]
